FAERS Safety Report 6693414-0 (Version None)
Quarter: 2010Q2

REPORT INFORMATION
  Report Type: 
  Country: None (occurrence: None)
  Receive Date: 20100423
  Receipt Date: 20100412
  Transmission Date: 20101027
  Serious: Yes (Other)
  Sender: FDA-Public Use
  Company Number: US-ASTRAZENECA-2009UW19145

PATIENT
  Age: 46 Year
  Sex: Female
  Weight: 130.6 kg

DRUGS (14)
  1. SEROQUEL [Suspect]
     Route: 048
     Dates: start: 20010530
  2. SYNTHROID [Concomitant]
     Dosage: 50 MCG
     Dates: start: 20010302
  3. ZYLOPRIM [Concomitant]
     Indication: HYPERURICAEMIA
     Dates: start: 20080901
  4. LOVASTATIN [Concomitant]
     Dates: start: 20081201
  5. ZIAC [Concomitant]
     Dates: start: 20080901
  6. CLONIDINE [Concomitant]
     Dates: start: 20080901
  7. PLAVIX [Concomitant]
     Dates: start: 20081201
  8. LAMICTAL [Concomitant]
     Dates: start: 20010607
  9. ATACAND [Concomitant]
     Dates: start: 20010302
  10. PROZAC [Concomitant]
     Dosage: 90MG , WEEKL
     Dates: start: 20010302
  11. SERZONE [Concomitant]
     Dates: start: 20010815
  12. CYCLOBENZAPRINE [Concomitant]
     Dates: start: 20010924
  13. ZOCOR [Concomitant]
     Dates: start: 20010302
  14. CELEBREX [Concomitant]
     Dates: start: 20010302

REACTIONS (3)
  - DIABETES MELLITUS [None]
  - NEUROPATHY PERIPHERAL [None]
  - TYPE 2 DIABETES MELLITUS [None]
